FAERS Safety Report 18558771 (Version 1)
Quarter: 2020Q4

REPORT INFORMATION
  Report Type: Spontaneous
  Country: GB (occurrence: GB)
  Receive Date: 20201130
  Receipt Date: 20201130
  Transmission Date: 20210114
  Serious: Yes (Death, Other)
  Sender: FDA-Public Use
  Company Number: GB-AMGEN-GBRSP2020190007

PATIENT

DRUGS (2)
  1. ALFACALCIDOL [Concomitant]
     Active Substance: ALFACALCIDOL
     Indication: BLOOD CALCIUM DECREASED
     Dosage: UNK UNK, QD
     Route: 065
  2. CINACALCET HCL [Suspect]
     Active Substance: CINACALCET HYDROCHLORIDE
     Indication: HYPERPARATHYROIDISM TERTIARY
     Dosage: 30 MILLIGRAM, QD
     Route: 065

REACTIONS (11)
  - Blood alkaline phosphatase increased [Unknown]
  - Off label use [Unknown]
  - Haemodialysis [Unknown]
  - Blood parathyroid hormone increased [Not Recovered/Not Resolved]
  - Blood phosphorus increased [Unknown]
  - Death [Fatal]
  - Drug intolerance [Unknown]
  - Product dose omission issue [Unknown]
  - Therapeutic product effect incomplete [Unknown]
  - Gastrointestinal disorder [Unknown]
  - Hypercalcaemia [Unknown]
